FAERS Safety Report 7526273-4 (Version None)
Quarter: 2011Q2

REPORT INFORMATION
  Report Type: 
  Country: None (occurrence: None)
  Receive Date: 20110603
  Receipt Date: 20110603
  Transmission Date: 20111010
  Serious: Yes (Hospitalization, Disabling)
  Sender: FDA-Public Use
  Company Number: None

PATIENT
  Age: 84 Year
  Sex: Female
  Weight: 87.771 kg

DRUGS (1)
  1. PRADAXA [Suspect]
     Indication: ATRIAL FIBRILLATION
     Dosage: 150 MG BID PO
     Route: 048

REACTIONS (5)
  - ASTHENIA [None]
  - COAGULATION TIME PROLONGED [None]
  - RECTAL HAEMORRHAGE [None]
  - DIZZINESS [None]
  - RENAL FAILURE ACUTE [None]
